FAERS Safety Report 8806284 (Version 2)
Quarter: 2012Q4

REPORT INFORMATION
  Report Type: 
  Country: US (occurrence: US)
  Receive Date: 20120925
  Receipt Date: 20121119
  Transmission Date: 20130627
  Serious: Yes (Other)
  Sender: FDA-Public Use
  Company Number: US-BAYER-2012-098203

PATIENT
  Age: 54 Year
  Sex: Female

DRUGS (17)
  1. YAZ [Suspect]
  2. YASMIN [Suspect]
  3. OCELLA [Suspect]
  4. SULAR [Concomitant]
     Dosage: 10 mg, QD
     Route: 048
  5. KADIAN [Concomitant]
     Dosage: 20 mg,daily
     Route: 048
  6. ACETAMINOPHEN W/PROPOXYPHENE [Concomitant]
     Dosage: 100-650 mg
     Route: 048
  7. IBUPROFEN [Concomitant]
     Dosage: 600 mg, TID
     Route: 048
  8. NASONEX [Concomitant]
     Dosage: 50 mcg 2 sprays daily
     Route: 055
  9. SERTRALINE [Concomitant]
     Dosage: 50 mg, QD
     Route: 048
  10. ALBUTEROL [Concomitant]
     Dosage: 90 mcg 2 puffs 3 times daily
     Route: 055
  11. HYDROCHLOROTHIAZIDE [Concomitant]
     Dosage: 25 mg, QD
     Route: 048
  12. CYCLOBENZAPRINE [Concomitant]
     Dosage: 10 mg 1-2 tablets nightly
     Route: 048
  13. TRAMADOL [Concomitant]
     Dosage: 50 mg 2 tablets 3 times a day
     Route: 048
  14. SYNTHROID [Concomitant]
     Dosage: 0.125 mg, QD
     Route: 048
  15. ALPRAZOLAM [Concomitant]
     Dosage: 0.5 mg daily at bedtime
     Route: 048
  16. VI-Q-TUSS [Concomitant]
     Dosage: 100-5 mg/5 ml every 4 hours
     Route: 048
  17. AVELOX [Concomitant]
     Dosage: 400 mg, QD
     Route: 048

REACTIONS (2)
  - Injury [None]
  - Pulmonary embolism [Recovered/Resolved]
